FAERS Safety Report 14218526 (Version 2)
Quarter: 2017Q4

REPORT INFORMATION
  Report Type: Spontaneous
  Country: ZA (occurrence: ZA)
  Receive Date: 20171123
  Receipt Date: 20171130
  Transmission Date: 20180321
  Serious: Yes (Death, Other)
  Sender: FDA-Public Use
  Company Number: ZA-PFIZER INC-2017505842

PATIENT
  Sex: Female

DRUGS (3)
  1. LOMANOR [Suspect]
     Active Substance: AMLODIPINE BESYLATE
  2. METHOTREXATE. [Suspect]
     Active Substance: METHOTREXATE
  3. CALTRATE WITH VITAMIN D [Suspect]
     Active Substance: CALCIUM CARBONATE\CHOLECALCIFEROL

REACTIONS (1)
  - Death [Fatal]

NARRATIVE: CASE EVENT DATE: 201710
